FAERS Safety Report 5067010-5 (Version None)
Quarter: 2006Q3

REPORT INFORMATION
  Report Type: 
  Country: None (occurrence: None)
  Receive Date: 20060801
  Receipt Date: 20060720
  Transmission Date: 20061208
  Serious: Yes (Hospitalization)
  Sender: FDA-Public Use
  Company Number: US-SANOFI-SYNTHELABO-A03200604655

PATIENT
  Age: 65 Year
  Sex: Female

DRUGS (17)
  1. AVANDAMET [Concomitant]
     Route: 048
  2. ORLISTAT [Concomitant]
     Route: 048
  3. PREMARIN [Concomitant]
     Route: 048
  4. OXYCONTIN [Suspect]
     Indication: NECK PAIN
     Route: 048
  5. OXYCONTIN [Suspect]
     Indication: BACK PAIN
     Route: 048
  6. AMBIEN [Suspect]
     Indication: INSOMNIA
     Route: 048
  7. GABAPENTIN [Concomitant]
     Route: 048
  8. DARVOCET [Concomitant]
     Route: 048
  9. ALBUTEROL SPIROS [Concomitant]
     Dosage: TWO PUFFS EVERY FOUR HOURS AS NEEDED
     Route: 055
  10. ULTRACET [Concomitant]
     Route: 048
  11. ALMOTRIPTAN [Concomitant]
     Route: 048
  12. ESOMEPRAZOLE MAGNESIUM [Concomitant]
     Route: 048
  13. PAROXETINE HCL [Concomitant]
     Route: 048
  14. PROPRANOLOL LA [Concomitant]
     Route: 048
  15. HYDROCHLOROTHIAZIDE [Concomitant]
     Route: 048
  16. POTASSIUM CHLORIDE [Concomitant]
     Route: 048
  17. ATORVASTATIN CALCIUM [Concomitant]
     Route: 048

REACTIONS (9)
  - AGGRESSION [None]
  - AGITATION [None]
  - CRYING [None]
  - DELIRIUM [None]
  - HYPERGLYCAEMIA [None]
  - HYPOKALAEMIA [None]
  - INTENTIONAL OVERDOSE [None]
  - TREATMENT NONCOMPLIANCE [None]
  - URINARY TRACT INFECTION [None]
